FAERS Safety Report 20062109 (Version 1)
Quarter: 2021Q4

REPORT INFORMATION
  Report Type: Spontaneous
  Country: US (occurrence: US)
  Receive Date: 20211112
  Receipt Date: 20211112
  Transmission Date: 20220303
  Serious: No
  Sender: FDA-Public Use
  Company Number: US-drreddys-SPO/USA/21/0143637

PATIENT
  Age: 45 Year
  Sex: Male

DRUGS (1)
  1. ACCUTANE [Suspect]
     Active Substance: ISOTRETINOIN
     Indication: Product used for unknown indication
     Dosage: RMA ISSUE DATE?16 SEPTEMBER 2021 3:32:19 PM
     Dates: start: 20210916, end: 20211108

REACTIONS (2)
  - Drug ineffective [Unknown]
  - Product quality issue [Unknown]
